FAERS Safety Report 6063033-8 (Version None)
Quarter: 2009Q1

REPORT INFORMATION
  Report Type: 
  Country: None (occurrence: None)
  Receive Date: 20090203
  Receipt Date: 20090128
  Transmission Date: 20090719
  Serious: Yes (Hospitalization)
  Sender: FDA-Public Use
  Company Number: JP-MERCK-0901USA04446

PATIENT
  Age: 39 Year
  Sex: Male

DRUGS (2)
  1. PROPECIA [Suspect]
     Indication: ANDROGENETIC ALOPECIA
     Route: 048
     Dates: start: 20090122, end: 20090126
  2. CALONAL [Concomitant]
     Indication: PYREXIA
     Route: 048
     Dates: start: 20090126

REACTIONS (1)
  - HEPATIC FUNCTION ABNORMAL [None]
